FAERS Safety Report 23350416 (Version 1)
Quarter: 2023Q4

REPORT INFORMATION
  Report Type: Spontaneous
  Country: GB (occurrence: GB)
  Receive Date: 20231229
  Receipt Date: 20231229
  Transmission Date: 20240109
  Serious: Yes (Life-Threatening, Other)
  Sender: FDA-Public Use
  Company Number: None

PATIENT
  Age: 60 Year
  Sex: Male
  Weight: 114 kg

DRUGS (4)
  1. GABAPENTIN [Suspect]
     Active Substance: GABAPENTIN
     Indication: Neuralgia
     Dosage: 600 MILLIGRAM, BID (600MG BD)
     Route: 065
     Dates: start: 20220211
  2. OXYCODONE [Suspect]
     Active Substance: OXYCODONE
     Indication: Pain
     Dosage: 40 MILLIGRAM, BID (40MG BD SR AND 10MG QDS IMMEDIATE RELEASE)
     Route: 065
     Dates: start: 20160803
  3. OXYCODONE [Suspect]
     Active Substance: OXYCODONE
     Dosage: 10 MILLIGRAM, QD ( (40MG BD SR AND 10MG QDS IMMEDIATE RELEASE)
     Route: 065
  4. PROMETHAZINE [Suspect]
     Active Substance: PROMETHAZINE HYDROCHLORIDE
     Indication: Insomnia
     Dosage: UNK UNK, QD (25-50MG NOCTE)
     Route: 065
     Dates: start: 20210202

REACTIONS (4)
  - Respiratory depression [Recovering/Resolving]
  - Dyspnoea [Unknown]
  - Hypopnoea [Unknown]
  - Breath holding [Unknown]
